FAERS Safety Report 8483088-0 (Version None)
Quarter: 2012Q3

REPORT INFORMATION
  Report Type: 
  Country: None (occurrence: None)
  Receive Date: 20120702
  Receipt Date: 20120625
  Transmission Date: 20120928
  Serious: Yes (Other)
  Sender: FDA-Public Use
  Company Number: AU-B.I. PHARMACEUTICALS,INC./RIDGEFIELD-2012-EU-03300GD

PATIENT
  Age: 56 Year
  Sex: Male

DRUGS (4)
  1. PRAMIPEXOLE DIHYCHLORIDE [Suspect]
     Indication: PARKINSON'S DISEASE
     Dosage: 3 MG
  2. SELEGILINE [Concomitant]
     Indication: PARKINSON'S DISEASE
     Dosage: 10 MG
  3. ENALAPRIL MALEATE [Concomitant]
     Indication: HYPERTENSION
  4. NIFEDIPINE [Suspect]
     Indication: HYPERTENSION
     Dosage: 40 MG

REACTIONS (4)
  - DISCOMFORT [None]
  - LYMPHOEDEMA [None]
  - GAIT DISTURBANCE [None]
  - OEDEMA PERIPHERAL [None]
